FAERS Safety Report 17112278 (Version 3)
Quarter: 2020Q1

REPORT INFORMATION
  Report Type: Spontaneous
  Country: US (occurrence: US)
  Receive Date: 20191204
  Receipt Date: 20200207
  Transmission Date: 20200409
  Serious: Yes (Hospitalization)
  Sender: FDA-Public Use
  Company Number: US-SHIRE-US201941236

PATIENT
  Age: 76 Year
  Sex: Female
  Weight: 60.77 kg

DRUGS (11)
  1. LIALDA [Suspect]
     Active Substance: MESALAMINE
     Indication: COLITIS ULCERATIVE
     Dosage: 1.2 GRAM, 4X/DAY:QID
     Route: 065
     Dates: start: 2009, end: 20191022
  2. CHOLECALCIFEROL [Concomitant]
     Active Substance: CHOLECALCIFEROL
     Indication: PRODUCT USED FOR UNKNOWN INDICATION
  3. FERROUS SULFATE. [Concomitant]
     Active Substance: FERROUS SULFATE
     Indication: PRODUCT USED FOR UNKNOWN INDICATION
  4. LIALDA [Suspect]
     Active Substance: MESALAMINE
     Dosage: 2.4 GRAM, 1X/DAY:QD
     Route: 065
     Dates: start: 201901
  5. MULTIVITAMIN + MINERAL [Concomitant]
     Active Substance: MINERALS\VITAMINS
     Indication: PRODUCT USED FOR UNKNOWN INDICATION
  6. DESMOPRESSIN ACETATE. [Concomitant]
     Active Substance: DESMOPRESSIN ACETATE
     Indication: PRODUCT USED FOR UNKNOWN INDICATION
  7. LIALDA [Suspect]
     Active Substance: MESALAMINE
     Dosage: 4 GRAM, 1X/DAY:QD
     Route: 065
  8. HUMANA [Concomitant]
     Indication: PRODUCT USED FOR UNKNOWN INDICATION
  9. REMICADE [Concomitant]
     Active Substance: INFLIXIMAB
     Indication: PRODUCT USED FOR UNKNOWN INDICATION
  10. LIALDA [Suspect]
     Active Substance: MESALAMINE
     Dosage: 4.8 GRAM, 1X/DAY:QD
     Route: 065
  11. MESALAMINE. [Concomitant]
     Active Substance: MESALAMINE
     Indication: PRODUCT USED FOR UNKNOWN INDICATION

REACTIONS (8)
  - Condition aggravated [Unknown]
  - Malaise [Unknown]
  - Dizziness [Unknown]
  - Fear [Unknown]
  - Insurance issue [Unknown]
  - Inability to afford medication [Unknown]
  - Stress [Unknown]
  - Treatment noncompliance [Unknown]

NARRATIVE: CASE EVENT DATE: 201908
